FAERS Safety Report 4308095-0 (Version None)
Quarter: 2004Q1

REPORT INFORMATION
  Report Type: 
  Country: None (occurrence: None)
  Receive Date: 20040301
  Receipt Date: 20030507
  Transmission Date: 20041129
  Serious: No
  Sender: FDA-Public Use
  Company Number: US-BRISTOL-MYERS SQUIBB COMPANY-12269833

PATIENT
  Age: 44 Year
  Sex: Female
  Weight: 91 kg

DRUGS (4)
  1. GLUCOPHAGE [Suspect]
     Indication: DIABETES MELLITUS
     Route: 048
  2. TOLAZAMIDE [Concomitant]
  3. CLONIDINE [Concomitant]
  4. NAPROXEN [Concomitant]

REACTIONS (2)
  - CONSTIPATION [None]
  - DERMAL CYST [None]
